FAERS Safety Report 18399901 (Version 1)
Quarter: 2020Q4

REPORT INFORMATION
  Report Type: Spontaneous
  Country: US (occurrence: US)
  Receive Date: 20201019
  Receipt Date: 20201019
  Transmission Date: 20210114
  Serious: No
  Sender: FDA-Public Use
  Company Number: US-ALLERGAN-2027176US

PATIENT
  Age: 25 Year
  Sex: Male

DRUGS (2)
  1. VRAYLAR [Suspect]
     Active Substance: CARIPRAZINE
     Indication: SCHIZOPHRENIA
     Dosage: 6 MG
     Route: 048
     Dates: end: 202006
  2. VRAYLAR [Suspect]
     Active Substance: CARIPRAZINE
     Dosage: 4.5 MG
     Route: 048
     Dates: start: 201909

REACTIONS (5)
  - Soliloquy [Not Recovered/Not Resolved]
  - Extrapyramidal disorder [Not Recovered/Not Resolved]
  - Drug ineffective [Unknown]
  - Intentional self-injury [Not Recovered/Not Resolved]
  - Tremor [Not Recovered/Not Resolved]
